FAERS Safety Report 26187535 (Version 1)
Quarter: 2025Q4

REPORT INFORMATION
  Report Type: Spontaneous
  Country: EU (occurrence: EU)
  Receive Date: 20251222
  Receipt Date: 20251222
  Transmission Date: 20260117
  Serious: Yes (Life-Threatening)
  Sender: MYLAN
  Company Number: None

PATIENT
  Age: 55 Year
  Sex: Female
  Weight: 78 kg

DRUGS (20)
  1. DEXAMETHASONE [Suspect]
     Active Substance: DEXAMETHASONE
     Indication: General anaesthesia
     Dosage: 8 MILLIGRAM, TOTAL
     Dates: start: 20251114, end: 20251114
  2. DEXAMETHASONE [Suspect]
     Active Substance: DEXAMETHASONE
     Dosage: 8 MILLIGRAM, TOTAL
     Route: 042
     Dates: start: 20251114, end: 20251114
  3. DEXAMETHASONE [Suspect]
     Active Substance: DEXAMETHASONE
     Dosage: 8 MILLIGRAM, TOTAL
     Route: 042
     Dates: start: 20251114, end: 20251114
  4. DEXAMETHASONE [Suspect]
     Active Substance: DEXAMETHASONE
     Dosage: 8 MILLIGRAM, TOTAL
     Dates: start: 20251114, end: 20251114
  5. SUFENTANIL CITRATE [Suspect]
     Active Substance: SUFENTANIL CITRATE
     Indication: General anaesthesia
     Dosage: 20 MICROGRAM, TOTAL
     Dates: start: 20251114, end: 20251114
  6. SUFENTANIL CITRATE [Suspect]
     Active Substance: SUFENTANIL CITRATE
     Dosage: 20 MICROGRAM, TOTAL
     Route: 042
     Dates: start: 20251114, end: 20251114
  7. SUFENTANIL CITRATE [Suspect]
     Active Substance: SUFENTANIL CITRATE
     Dosage: 20 MICROGRAM, TOTAL
     Route: 042
     Dates: start: 20251114, end: 20251114
  8. SUFENTANIL CITRATE [Suspect]
     Active Substance: SUFENTANIL CITRATE
     Dosage: 20 MICROGRAM, TOTAL
     Dates: start: 20251114, end: 20251114
  9. PROPOFOL [Suspect]
     Active Substance: PROPOFOL
     Indication: General anaesthesia
     Dosage: 262 MILLIGRAM, TOTAL
     Dates: start: 20251114, end: 20251114
  10. PROPOFOL [Suspect]
     Active Substance: PROPOFOL
     Dosage: 262 MILLIGRAM, TOTAL
     Route: 042
     Dates: start: 20251114, end: 20251114
  11. PROPOFOL [Suspect]
     Active Substance: PROPOFOL
     Dosage: 262 MILLIGRAM, TOTAL
     Route: 042
     Dates: start: 20251114, end: 20251114
  12. PROPOFOL [Suspect]
     Active Substance: PROPOFOL
     Dosage: 262 MILLIGRAM, TOTAL
     Dates: start: 20251114, end: 20251114
  13. ROCURONIUM [Suspect]
     Active Substance: ROCURONIUM BROMIDE
     Indication: General anaesthesia
     Dosage: 40 MILLIGRAM, TOTAL
     Dates: start: 20251114, end: 20251114
  14. ROCURONIUM [Suspect]
     Active Substance: ROCURONIUM BROMIDE
     Dosage: 40 MILLIGRAM, TOTAL
     Route: 042
     Dates: start: 20251114, end: 20251114
  15. ROCURONIUM [Suspect]
     Active Substance: ROCURONIUM BROMIDE
     Dosage: 40 MILLIGRAM, TOTAL
     Route: 042
     Dates: start: 20251114, end: 20251114
  16. ROCURONIUM [Suspect]
     Active Substance: ROCURONIUM BROMIDE
     Dosage: 40 MILLIGRAM, TOTAL
     Dates: start: 20251114, end: 20251114
  17. KETAMINE [Suspect]
     Active Substance: KETAMINE
     Indication: General anaesthesia
     Dosage: 30 MILLIGRAM, TOTAL
     Dates: start: 20251114, end: 20251114
  18. KETAMINE [Suspect]
     Active Substance: KETAMINE
     Dosage: 30 MILLIGRAM, TOTAL
     Route: 042
     Dates: start: 20251114, end: 20251114
  19. KETAMINE [Suspect]
     Active Substance: KETAMINE
     Dosage: 30 MILLIGRAM, TOTAL
     Route: 042
     Dates: start: 20251114, end: 20251114
  20. KETAMINE [Suspect]
     Active Substance: KETAMINE
     Dosage: 30 MILLIGRAM, TOTAL
     Dates: start: 20251114, end: 20251114

REACTIONS (1)
  - Anaphylactic shock [Recovered/Resolved]

NARRATIVE: CASE EVENT DATE: 20251114
